FAERS Safety Report 11209199 (Version 1)
Quarter: 2015Q2

REPORT INFORMATION
  Report Type: Spontaneous
  Country: SE (occurrence: SE)
  Receive Date: 20150622
  Receipt Date: 20150622
  Transmission Date: 20150821
  Serious: Yes (Death, Hospitalization)
  Sender: FDA-Public Use
  Company Number: PHHY2015SE069643

PATIENT
  Age: 31 Year
  Sex: Male
  Weight: 140 kg

DRUGS (4)
  1. CAFFEINE. [Suspect]
     Active Substance: CAFFEINE
     Indication: PRODUCT USED FOR UNKNOWN INDICATION
     Route: 065
  2. FLUNITRAZEPAM [Suspect]
     Active Substance: FLUNITRAZEPAM
     Indication: ATTENTION DEFICIT/HYPERACTIVITY DISORDER
     Dosage: 1 MG, QD
     Route: 065
  3. LISDEXAMFETAMINE [Suspect]
     Active Substance: LISDEXAMFETAMINE
     Indication: ATTENTION DEFICIT/HYPERACTIVITY DISORDER
     Dosage: 130 MG, QD
     Route: 065
  4. CLOMIPRAMINE [Suspect]
     Active Substance: CLOMIPRAMINE
     Indication: ATTENTION DEFICIT/HYPERACTIVITY DISORDER
     Dosage: 375 MG, QD
     Route: 065

REACTIONS (11)
  - Hyperhidrosis [Unknown]
  - Stress [Unknown]
  - Blood creatine phosphokinase increased [Unknown]
  - Tachycardia [Unknown]
  - Aggression [Unknown]
  - Hyperthermia [Unknown]
  - Disorientation [Unknown]
  - Confusional state [Unknown]
  - Circulatory collapse [Fatal]
  - Adrenergic syndrome [Unknown]
  - Seizure [Unknown]
